FAERS Safety Report 20031135 (Version 1)
Quarter: 2021Q4

REPORT INFORMATION
  Report Type: Spontaneous
  Country: CA (occurrence: CA)
  Receive Date: 20211103
  Receipt Date: 20211103
  Transmission Date: 20220304
  Serious: Yes (Other)
  Sender: FDA-Public Use
  Company Number: CA-PFIZER INC-202101468320

PATIENT
  Age: 29 Year
  Sex: Female

DRUGS (8)
  1. METHOTREXATE SODIUM [Suspect]
     Active Substance: METHOTREXATE SODIUM
     Dosage: 15 MG, WEEKLY
  2. FOLATE SODIUM [Concomitant]
     Active Substance: FOLATE SODIUM
     Dosage: 1 DF ON NON METHOTREXATE DAYS.
  3. IRON [Concomitant]
     Active Substance: IRON
     Dosage: UNK
     Route: 048
  4. INFLECTRA [Concomitant]
     Active Substance: INFLIXIMAB-DYYB
     Indication: Colitis ulcerative
     Dosage: 300MG Q 0, 2, 6 THEN EVERY 8 WEEK
     Dates: start: 20200707, end: 20200822
  5. INFLECTRA [Concomitant]
     Active Substance: INFLIXIMAB-DYYB
     Dosage: 300MG Q 0, 2, 6 THEN EVERY 8 WEEK
     Route: 042
     Dates: start: 20200918, end: 20200918
  6. INFLECTRA [Concomitant]
     Active Substance: INFLIXIMAB-DYYB
     Dosage: 10 MG/KG EVERY 6 WEEKS
     Route: 042
     Dates: start: 20201126, end: 20210217
  7. INFLECTRA [Concomitant]
     Active Substance: INFLIXIMAB-DYYB
     Dosage: 600MG EVERY 4 WEEKS
     Route: 042
     Dates: start: 20210319
  8. PREDNISONE [Concomitant]
     Active Substance: PREDNISONE

REACTIONS (6)
  - Haematochezia [Recovering/Resolving]
  - Gastrointestinal hypermotility [Recovering/Resolving]
  - Asthenia [Not Recovered/Not Resolved]
  - Pharyngitis streptococcal [Not Recovered/Not Resolved]
  - Alopecia [Unknown]
  - Inflammation [Unknown]
